FAERS Safety Report 7834446-6 (Version None)
Quarter: 2011Q4

REPORT INFORMATION
  Report Type: 
  Country: None (occurrence: None)
  Receive Date: 20111024
  Receipt Date: 20111014
  Transmission Date: 20120403
  Serious: Yes (Other)
  Sender: FDA-Public Use
  Company Number: RU-ELI_LILLY_AND_COMPANY-RU201110004741

PATIENT
  Age: 61 Year
  Sex: Male

DRUGS (1)
  1. HUMULIN 70/30 [Suspect]
     Route: 058

REACTIONS (2)
  - ANGIOEDEMA [None]
  - URTICARIA [None]
